FAERS Safety Report 8732444 (Version 2)
Quarter: 2015Q3

REPORT INFORMATION
  Report Type: Report from Study
  Country: US (occurrence: US)
  Receive Date: 20120820
  Receipt Date: 20150731
  Transmission Date: 20151125
  Serious: Yes (Other)
  Sender: FDA-Public Use
  Company Number: US-ROCHE-1100428

PATIENT
  Age: 54 Year
  Sex: Male

DRUGS (6)
  1. PROBENECID. [Concomitant]
     Active Substance: PROBENECID
  2. TRINITROGLYCERIN [Concomitant]
     Route: 060
  3. ACTIVASE [Suspect]
     Active Substance: ALTEPLASE
     Indication: ACUTE MYOCARDIAL INFARCTION
     Route: 042
  4. LOPRESSOR [Concomitant]
     Active Substance: METOPROLOL TARTRATE
     Route: 065
  5. HABITROL [Concomitant]
     Active Substance: NICOTINE
     Route: 065
  6. NITRO-BID [Concomitant]
     Active Substance: NITROGLYCERIN
     Route: 065

REACTIONS (4)
  - Belligerence [Unknown]
  - Blood pressure increased [Unknown]
  - Blood creatine phosphokinase increased [Unknown]
  - Chest pain [Unknown]

NARRATIVE: CASE EVENT DATE: 19930219
